FAERS Safety Report 5064288-9 (Version None)
Quarter: 2006Q3

REPORT INFORMATION
  Report Type: 
  Country: None (occurrence: None)
  Receive Date: 20060725
  Receipt Date: 20060714
  Transmission Date: 20061208
  Serious: Yes (Other)
  Sender: FDA-Public Use
  Company Number: 2006US-02910

PATIENT
  Age: 40 Year
  Sex: Female

DRUGS (1)
  1. ISOTRETINOIN [Suspect]
     Dosage: 30 MG, QD
     Dates: start: 20060401, end: 20060601

REACTIONS (2)
  - BLOOD PROLACTIN INCREASED [None]
  - HEADACHE [None]
